FAERS Safety Report 12048724 (Version 1)
Quarter: 2016Q1

REPORT INFORMATION
  Report Type: Spontaneous
  Country: US (occurrence: None)
  Receive Date: 20160208
  Receipt Date: 20160208
  Transmission Date: 20160526
  Serious: Yes (Life-Threatening, Hospitalization, Disabling)
  Sender: FDA-Public Use
  Company Number: None

PATIENT
  Age: 26 Year
  Sex: Male
  Weight: 149.69 kg

DRUGS (1)
  1. EPIDURAL STEROID INJECTION [Suspect]
     Active Substance: UNSPECIFIED INGREDIENT

REACTIONS (4)
  - Drug effect decreased [None]
  - Arachnoiditis [None]
  - Procedural headache [None]
  - Dural tear [None]

NARRATIVE: CASE EVENT DATE: 20010801
